FAERS Safety Report 22255680 (Version 1)
Quarter: 2023Q2

REPORT INFORMATION
  Report Type: Spontaneous
  Country: US (occurrence: None)
  Receive Date: 20230424
  Receipt Date: 20230424
  Transmission Date: 20230722
  Serious: Yes (unspecified)
  Sender: FDA-Public Use
  Company Number: None

PATIENT
  Age: 22 Year
  Sex: Female
  Weight: 86 kg

DRUGS (2)
  1. VITAMINS [Suspect]
     Active Substance: VITAMINS
     Indication: Vitamin supplementation
     Dosage: OTHER FREQUENCY : WEEKLY;?
     Route: 042
     Dates: start: 20230424, end: 20230424
  2. LACTATED RINGERS SOLUTION [Suspect]
     Active Substance: CALCIUM CHLORIDE\POTASSIUM CHLORIDE\SODIUM CHLORIDE\SODIUM LACTATE

REACTIONS (5)
  - Cough [None]
  - Dyspnoea [None]
  - Dyspnoea [None]
  - Cyanosis [None]
  - Rash [None]

NARRATIVE: CASE EVENT DATE: 20230424
